FAERS Safety Report 19913387 (Version 1)
Quarter: 2021Q4

REPORT INFORMATION
  Report Type: Spontaneous
  Country: FI (occurrence: FI)
  Receive Date: 20211004
  Receipt Date: 20211004
  Transmission Date: 20220303
  Serious: Yes (Other)
  Sender: FDA-Public Use
  Company Number: FI-MALLINCKRODT PHARMACEUTICALS-T202104459

PATIENT
  Age: 41 Year
  Sex: Female

DRUGS (6)
  1. UVADEX [Suspect]
     Active Substance: METHOXSALEN
     Indication: Graft versus host disease
     Dosage: UNK (EXTRACORPOREAL), THERAPY KEPT ON HOLD
     Route: 050
  2. UVADEX [Suspect]
     Active Substance: METHOXSALEN
     Dosage: UNK (EXTRACORPOREAL)
     Route: 050
  3. METHYLPREDNISOLONE [Concomitant]
     Active Substance: METHYLPREDNISOLONE
     Indication: Graft versus host disease
     Dosage: UNK
     Route: 042
  4. BUDESONIDE [Concomitant]
     Active Substance: BUDESONIDE
     Indication: Graft versus host disease
     Dosage: UNK
     Route: 048
  5. RUXOLITINIB [Concomitant]
     Active Substance: RUXOLITINIB
     Indication: Graft versus host disease
     Dosage: 10 MILLIGRAM, TID
     Route: 065
  6. VEDOLIZUMAB [Concomitant]
     Active Substance: VEDOLIZUMAB
     Indication: Graft versus host disease
     Dosage: 300 MILLIGRAM (TWO INFUSIONS)
     Route: 065

REACTIONS (6)
  - Intestinal perforation [Unknown]
  - Pancytopenia [Unknown]
  - Gastrointestinal necrosis [Unknown]
  - Intestinal obstruction [Unknown]
  - Stoma site discharge [Unknown]
  - Product use in unapproved indication [Unknown]
